FAERS Safety Report 4761139-4 (Version None)
Quarter: 2005Q3

REPORT INFORMATION
  Report Type: 
  Country: None (occurrence: None)
  Receive Date: 20050901
  Receipt Date: 20050826
  Transmission Date: 20060218
  Serious: Yes (Hospitalization)
  Sender: FDA-Public Use
  Company Number: 2005-131919-NL

PATIENT
  Age: 31 Year
  Sex: Female

DRUGS (2)
  1. MIRTAZAPINE [Suspect]
     Dosage: 45 MG
     Dates: start: 20050701
  2. VENLAFAXINE [Concomitant]

REACTIONS (2)
  - EPILEPSY [None]
  - INSOMNIA [None]
